FAERS Safety Report 4361374-3 (Version None)
Quarter: 2004Q2

REPORT INFORMATION
  Report Type: 
  Country: None (occurrence: None)
  Receive Date: 20040521
  Receipt Date: 20040513
  Transmission Date: 20050107
  Serious: Yes (Hospitalization)
  Sender: FDA-Public Use
  Company Number: PHEH2004US05292

PATIENT
  Sex: Female

DRUGS (2)
  1. TRILEPTAL [Suspect]
     Indication: AFFECTIVE DISORDER
     Dosage: UNK, BID
     Route: 048
     Dates: start: 20010101
  2. TRILAFON [Concomitant]

REACTIONS (3)
  - COMA [None]
  - PANCREATECTOMY [None]
  - PANCREATITIS [None]
